FAERS Safety Report 5106387-9 (Version None)
Quarter: 2006Q3

REPORT INFORMATION
  Report Type: 
  Country: None (occurrence: None)
  Receive Date: 20060918
  Receipt Date: 20060310
  Transmission Date: 20061208
  Serious: Yes (Hospitalization)
  Sender: FDA-Public Use
  Company Number: PHHO2006GR04095

PATIENT
  Age: 77 Year
  Sex: Male
  Weight: 78 kg

DRUGS (4)
  1. XATRAL [Concomitant]
     Indication: BENIGN PROSTATIC HYPERPLASIA
     Dosage: UNK, UNK
     Route: 048
     Dates: start: 20010101
  2. EXJADE [Suspect]
     Indication: BLOOD IRON INCREASED
     Dosage: UNK, NO TREATMENT
     Dates: start: 20060311, end: 20060314
  3. EXJADE [Suspect]
     Dosage: 1500 MG, QD
     Route: 048
     Dates: start: 20060315, end: 20060413
  4. EXJADE [Suspect]
     Dosage: 1500 MG, QD
     Route: 048
     Dates: start: 20060215, end: 20060310

REACTIONS (3)
  - CONCOMITANT DISEASE PROGRESSION [None]
  - HAEMATOCRIT DECREASED [None]
  - MYELODYSPLASTIC SYNDROME [None]
